FAERS Safety Report 16215096 (Version 2)
Quarter: 2019Q2

REPORT INFORMATION
  Report Type: Spontaneous
  Country: CN (occurrence: CN)
  Receive Date: 20190419
  Receipt Date: 20190422
  Transmission Date: 20190711
  Serious: Yes (Hospitalization)
  Sender: FDA-Public Use
  Company Number: CN-JNJFOC-20190417222

PATIENT
  Age: 3 Year
  Sex: Female
  Weight: 16 kg

DRUGS (3)
  1. CHILDRENS MOTRIN [Suspect]
     Active Substance: IBUPROFEN
     Indication: PYREXIA
     Dosage: TOOK MORE THAN 4 ML AND LESS THAN 5 ML (AS NEEDED)
     Route: 048
     Dates: start: 20190405, end: 20190407
  2. CHILDRENS MOTRIN [Suspect]
     Active Substance: IBUPROFEN
     Route: 048
  3. OSELTAMIVIR PHOSPHATE. [Concomitant]
     Active Substance: OSELTAMIVIR PHOSPHATE
     Indication: PRODUCT USED FOR UNKNOWN INDICATION
     Dosage: 2 PACKS PER TIME.TAKEN WITH AN INTERVAL OF ??THREE HOURS OF TAKING MSL 30 ML/BOTTLE
     Route: 065

REACTIONS (4)
  - Generalised erythema [Not Recovered/Not Resolved]
  - Incorrect dose administered [Unknown]
  - Regurgitation [Unknown]
  - Wrong technique in product usage process [Unknown]

NARRATIVE: CASE EVENT DATE: 20190405
